FAERS Safety Report 8077064-X (Version None)
Quarter: 2012Q1

REPORT INFORMATION
  Report Type: 
  Country: None (occurrence: None)
  Receive Date: 20120127
  Receipt Date: 20120120
  Transmission Date: 20120608
  Serious: Yes (Hospitalization)
  Sender: FDA-Public Use
  Company Number: PHHY2012FR005632

PATIENT
  Age: 75 Year
  Sex: Male

DRUGS (2)
  1. RASILEZ [Suspect]
  2. CANDESARTAN CILEXETIL [Concomitant]
     Dosage: UNK

REACTIONS (1)
  - CEREBROVASCULAR ACCIDENT [None]
